FAERS Safety Report 4663403-6 (Version None)
Quarter: 2005Q2

REPORT INFORMATION
  Report Type: 
  Country: None (occurrence: None)
  Receive Date: 20050513
  Receipt Date: 20050503
  Transmission Date: 20051028
  Serious: Yes (Other)
  Sender: FDA-Public Use
  Company Number: 2005BI005031

PATIENT
  Age: 25 Year
  Sex: Female

DRUGS (3)
  1. AVONEX [Suspect]
     Indication: MULTIPLE SCLEROSIS
     Dosage: IM
     Route: 030
     Dates: start: 19970801, end: 20040120
  2. ALBUTEROL [Concomitant]
  3. TYLENOL (CAPLET) [Concomitant]

REACTIONS (2)
  - DRUG HYPERSENSITIVITY [None]
  - INFLUENZA LIKE ILLNESS [None]
